FAERS Safety Report 5132598-2 (Version None)
Quarter: 2006Q4

REPORT INFORMATION
  Report Type: 
  Country: None (occurrence: None)
  Receive Date: 20061023
  Receipt Date: 20061011
  Transmission Date: 20070319
  Serious: Yes (Life-Threatening, Hospitalization)
  Sender: FDA-Public Use
  Company Number: IT-ROCHE-466708

PATIENT
  Age: 59 Year
  Sex: Female

DRUGS (3)
  1. MYCOPHENOLATE MOFETIL [Suspect]
     Route: 048
     Dates: start: 20060202, end: 20060305
  2. FK506 [Suspect]
     Route: 048
     Dates: start: 20060214
  3. FK506 [Suspect]
     Route: 048
     Dates: end: 20060319

REACTIONS (4)
  - COMA [None]
  - ENCEPHALITIS [None]
  - KIDNEY TRANSPLANT REJECTION [None]
  - NEPHRECTOMY [None]
